FAERS Safety Report 16359100 (Version 2)
Quarter: 2019Q3

REPORT INFORMATION
  Report Type: Report from Study
  Country: US (occurrence: US)
  Receive Date: 20190527
  Receipt Date: 20190822
  Transmission Date: 20191004
  Serious: No
  Sender: FDA-Public Use
  Company Number: US-SA-2019SA138785

PATIENT
  Age: 69 Year
  Sex: Female
  Weight: 72.56 kg

DRUGS (2)
  1. DUPILUMAB [Suspect]
     Active Substance: DUPILUMAB
     Indication: DERMATITIS ATOPIC
     Dosage: 300 MG, QOW
     Route: 058
     Dates: start: 2018, end: 201902
  2. DUPILUMAB [Suspect]
     Active Substance: DUPILUMAB
     Indication: ECZEMA
     Dosage: 600 MG, 1X
     Route: 065
     Dates: start: 201806, end: 201806

REACTIONS (8)
  - Blood testosterone increased [Not Recovered/Not Resolved]
  - Rebound eczema [Unknown]
  - Papilloma [Recovered/Resolved]
  - Hirsutism [Unknown]
  - Vision blurred [Recovered/Resolved]
  - Disease recurrence [Unknown]
  - Hair texture abnormal [Recovering/Resolving]
  - Pruritus [Unknown]

NARRATIVE: CASE EVENT DATE: 2018
